FAERS Safety Report 20375162 (Version 2)
Quarter: 2022Q1

REPORT INFORMATION
  Report Type: Spontaneous
  Country: US (occurrence: US)
  Receive Date: 20220125
  Receipt Date: 20220309
  Transmission Date: 20220423
  Serious: No
  Sender: FDA-Public Use
  Company Number: US-BoehringerIngelheim-2022-BI-150072

PATIENT
  Age: 79 Year
  Sex: Male

DRUGS (1)
  1. JARDIANCE [Suspect]
     Active Substance: EMPAGLIFLOZIN
     Indication: Type 2 diabetes mellitus
     Dates: start: 2019

REACTIONS (2)
  - Glycosylated haemoglobin increased [Unknown]
  - Product quality issue [Unknown]

NARRATIVE: CASE EVENT DATE: 20220121
